FAERS Safety Report 20098359 (Version 1)
Quarter: 2021Q4

REPORT INFORMATION
  Report Type: Spontaneous
  Country: HR (occurrence: HR)
  Receive Date: 20211122
  Receipt Date: 20211122
  Transmission Date: 20220303
  Serious: Yes (Other)
  Sender: FDA-Public Use
  Company Number: None

PATIENT
  Age: 13 Year
  Sex: Female

DRUGS (4)
  1. SERTRALINE HYDROCHLORIDE [Suspect]
     Active Substance: SERTRALINE HYDROCHLORIDE
     Dosage: 750 MG, 1X/DAY
     Route: 048
     Dates: start: 20210628, end: 20210628
  2. DIAZEPAM [Suspect]
     Active Substance: DIAZEPAM
     Dosage: 100 MG, 1X/DAY
     Route: 048
     Dates: start: 20210628, end: 20210628
  3. QUETIAPINE [Suspect]
     Active Substance: QUETIAPINE
     Dosage: 250 MG, 1X/DAY
     Route: 048
     Dates: start: 20210628, end: 20210628
  4. ARIPIPRAZOLE [Suspect]
     Active Substance: ARIPIPRAZOLE
     Dosage: 90 MG, 1X/DAY
     Route: 048
     Dates: start: 20210628, end: 20210628

REACTIONS (4)
  - Intentional overdose [Unknown]
  - Suicide attempt [Unknown]
  - Vision blurred [Unknown]
  - Somnolence [Unknown]

NARRATIVE: CASE EVENT DATE: 20210628
